FAERS Safety Report 16928905 (Version 1)
Quarter: 2019Q4

REPORT INFORMATION
  Report Type: Spontaneous
  Country: JP (occurrence: JP)
  Receive Date: 20191017
  Receipt Date: 20191017
  Transmission Date: 20200122
  Serious: Yes (Disabling, Other)
  Sender: FDA-Public Use
  Company Number: JP-LEO PHARMA-325858

PATIENT
  Age: 76 Year
  Sex: Male

DRUGS (1)
  1. DAIVOBET [Suspect]
     Active Substance: BETAMETHASONE DIPROPIONATE\CALCIPOTRIENE
     Indication: PSORIASIS
     Dosage: 180G/MONTH
     Route: 061

REACTIONS (2)
  - Renal impairment [Recovered/Resolved]
  - Hypercalcaemia [Recovered/Resolved]
